FAERS Safety Report 9302548 (Version 1)
Quarter: 2013Q2

REPORT INFORMATION
  Report Type: Spontaneous
  Country: ES (occurrence: None)
  Receive Date: 20130517
  Receipt Date: 20130517
  Transmission Date: 20140414
  Serious: Yes (Other)
  Sender: FDA-Public Use
  Company Number: 2013P1005708

PATIENT
  Sex: 0

DRUGS (5)
  1. FENTANYL [Suspect]
     Indication: SURGERY
     Route: 042
  2. ONDANSETRON [Concomitant]
  3. DEXKETOPROFEN [Concomitant]
  4. PARACETAMOL [Concomitant]
  5. LEVOBUPIVACAINE 0.2% [Concomitant]

REACTIONS (1)
  - Ileus [None]
